FAERS Safety Report 4753017-1 (Version None)
Quarter: 2005Q3

REPORT INFORMATION
  Report Type: 
  Country: None (occurrence: None)
  Receive Date: 20050826
  Receipt Date: 20050506
  Transmission Date: 20060218
  Serious: Yes (Hospitalization)
  Sender: FDA-Public Use
  Company Number: US-MERCK-0505USA00964

PATIENT
  Age: 66 Year
  Sex: Male
  Weight: 130 kg

DRUGS (5)
  1. VIOXX [Suspect]
     Indication: ARTHRITIS
     Route: 048
     Dates: start: 20011001, end: 20040930
  2. VIOXX [Suspect]
     Route: 048
     Dates: start: 20011001, end: 20040930
  3. VIAGRA [Concomitant]
     Indication: ERECTILE DYSFUNCTION
     Route: 065
  4. GLYBURIDE [Concomitant]
     Indication: DIABETES MELLITUS
     Route: 065
  5. HYDROCORTISONE ACETATE [Concomitant]
     Route: 065

REACTIONS (10)
  - ANGINA PECTORIS [None]
  - BRONCHITIS [None]
  - CEREBROVASCULAR ACCIDENT [None]
  - CHRONIC OBSTRUCTIVE PULMONARY DISEASE [None]
  - CORONARY ARTERY DISEASE [None]
  - HYPERTENSION [None]
  - LACUNAR INFARCTION [None]
  - MYOCARDIAL ISCHAEMIA [None]
  - PARAESTHESIA [None]
  - RENAL FAILURE CHRONIC [None]
